FAERS Safety Report 4279594-5 (Version None)
Quarter: 2004Q1

REPORT INFORMATION
  Report Type: 
  Country: None (occurrence: None)
  Receive Date: 20040123
  Receipt Date: 20040113
  Transmission Date: 20041129
  Serious: Yes (Other)
  Sender: FDA-Public Use
  Company Number: 2002056210

PATIENT
  Age: 67 Year
  Sex: Female

DRUGS (6)
  1. LOPID [Suspect]
     Indication: ILL-DEFINED DISORDER
     Dosage: 1200 MG (DAILY), ORAL
     Route: 048
  2. CERIVASTATIN SODIUM (CERIVASTATIN SODIUM) [Suspect]
     Indication: HYPERLIPIDAEMIA
     Dosage: 0.8 MG (DAILY), ORAL
     Route: 048
     Dates: start: 20010201, end: 20010301
  3. CERIVASTATIN SODIUM (CERIVASTATIN SODIUM) [Suspect]
     Indication: HYPERTRIGLYCERIDAEMIA
     Dosage: 0.8 MG (DAILY), ORAL
     Route: 048
     Dates: start: 20010201, end: 20010301
  4. GUAIFENESIN (GUAIFENESIN) [Concomitant]
  5. NICOTINIC ACID [Concomitant]
  6. ALPRAZOLAM [Concomitant]

REACTIONS (12)
  - ARTHRALGIA [None]
  - BLOOD URINE [None]
  - CHROMATURIA [None]
  - CULTURE URINE POSITIVE [None]
  - KIDNEY INFECTION [None]
  - MUSCLE INJURY [None]
  - MUSCULOSKELETAL STIFFNESS [None]
  - MYALGIA [None]
  - PAIN IN EXTREMITY [None]
  - PROTEIN URINE [None]
  - RHABDOMYOLYSIS [None]
  - STREPTOCOCCAL INFECTION [None]
